FAERS Safety Report 14243824 (Version 2)
Quarter: 2017Q4

REPORT INFORMATION
  Report Type: Spontaneous
  Country: ZA (occurrence: ZA)
  Receive Date: 20171201
  Receipt Date: 20171210
  Transmission Date: 20180321
  Serious: Yes (Hospitalization, Other)
  Sender: FDA-Public Use
  Company Number: PHHY2017ZA174169

PATIENT
  Sex: Female

DRUGS (1)
  1. LEVOFLOXACIN. [Suspect]
     Active Substance: LEVOFLOXACIN
     Indication: SINUSITIS BACTERIAL
     Dosage: 500 MG, FOR 10 DAYS
     Route: 065

REACTIONS (11)
  - Malaise [Unknown]
  - Tendon injury [Unknown]
  - Nausea [Not Recovered/Not Resolved]
  - Pain in extremity [Not Recovered/Not Resolved]
  - Vomiting [Unknown]
  - Musculoskeletal stiffness [Not Recovered/Not Resolved]
  - Headache [Unknown]
  - Gait inability [Unknown]
  - Feeling abnormal [Unknown]
  - Loss of consciousness [Unknown]
  - Movement disorder [Unknown]

NARRATIVE: CASE EVENT DATE: 20171102
